FAERS Safety Report 14013716 (Version 6)
Quarter: 2018Q1

REPORT INFORMATION
  Report Type: Report from Study
  Country: US (occurrence: US)
  Receive Date: 20170926
  Receipt Date: 20180309
  Transmission Date: 20180508
  Serious: Yes (Hospitalization)
  Sender: FDA-Public Use
  Company Number: US-ACTELION-A-NJ2017-147963

PATIENT
  Age: 68 Year
  Sex: Female
  Weight: 57.6 kg

DRUGS (7)
  1. REMODULIN [Concomitant]
     Active Substance: TREPROSTINIL
  2. DILTIAZEM. [Concomitant]
     Active Substance: DILTIAZEM
  3. TRACLEER [Suspect]
     Active Substance: BOSENTAN
     Indication: PULMONARY ARTERIAL HYPERTENSION
     Dosage: 125 MG, BID
     Route: 048
     Dates: start: 20070307
  4. NIFEDIPINE. [Concomitant]
     Active Substance: NIFEDIPINE
  5. TRACLEER [Suspect]
     Active Substance: BOSENTAN
     Dosage: 125 MG, BID
     Route: 048
  6. ADCIRCA [Concomitant]
     Active Substance: TADALAFIL
  7. WARFARIN [Concomitant]
     Active Substance: WARFARIN

REACTIONS (17)
  - Catheter site rash [Unknown]
  - Sinusitis [Unknown]
  - Bacterial infection [Unknown]
  - Respiratory disorder [Unknown]
  - Respiratory failure [Unknown]
  - Atrial fibrillation [Unknown]
  - Sepsis [Unknown]
  - Fungaemia [Unknown]
  - Catheter site erosion [Unknown]
  - Malaise [Unknown]
  - Decreased appetite [Unknown]
  - Chronic obstructive pulmonary disease [Unknown]
  - Cystitis [Unknown]
  - Pruritus [Unknown]
  - Oxygen saturation decreased [Unknown]
  - Dyspnoea [Unknown]
  - Bilevel positive airway pressure [Unknown]
